FAERS Safety Report 6936841-6 (Version None)
Quarter: 2010Q3

REPORT INFORMATION
  Report Type: 
  Country: None (occurrence: None)
  Receive Date: 20100823
  Receipt Date: 20100813
  Transmission Date: 20110219
  Serious: Yes (Other)
  Sender: FDA-Public Use
  Company Number: US-RB-014239-10

PATIENT
  Age: 27 Year
  Sex: Male

DRUGS (1)
  1. SUBOXONE [Suspect]
     Indication: PRODUCT USED FOR UNKNOWN INDICATION
     Dosage: UNKNOWN DOSING DETAILS
     Route: 065

REACTIONS (10)
  - ACTIVITIES OF DAILY LIVING IMPAIRED [None]
  - DECREASED APPETITE [None]
  - DIARRHOEA [None]
  - DYSURIA [None]
  - HALLUCINATION [None]
  - HYPERHIDROSIS [None]
  - NIGHTMARE [None]
  - PAIN [None]
  - TREMOR [None]
  - VOMITING [None]
